FAERS Safety Report 6361177-4 (Version None)
Quarter: 2009Q3

REPORT INFORMATION
  Report Type: 
  Country: None (occurrence: None)
  Receive Date: 20090918
  Receipt Date: 20090910
  Transmission Date: 20100115
  Serious: Yes (Death, Life-Threatening)
  Sender: FDA-Public Use
  Company Number: IL-NOVOPROD-291618

PATIENT
  Sex: Male

DRUGS (2)
  1. NOVOSEVEN [Suspect]
     Indication: HAEMORRHAGE
     Route: 042
  2. NOVOSEVEN [Suspect]
     Dosage: ULTRASONIC INHALATION
     Route: 055

REACTIONS (1)
  - DEATH [None]
